FAERS Safety Report 17676161 (Version 1)
Quarter: 2020Q2

REPORT INFORMATION
  Report Type: Spontaneous
  Country: US (occurrence: US)
  Receive Date: 20200416
  Receipt Date: 20200416
  Transmission Date: 20200714
  Serious: Yes (Death)
  Sender: FDA-Public Use
  Company Number: US-MISSION PHARMACAL COMPANY-2082919

PATIENT
  Age: 71 Year
  Sex: Male

DRUGS (1)
  1. THIOLA EC [Suspect]
     Active Substance: TIOPRONIN
     Route: 048
     Dates: start: 20191018

REACTIONS (1)
  - Death [Fatal]
